FAERS Safety Report 18728095 (Version 3)
Quarter: 2021Q1

REPORT INFORMATION
  Report Type: Spontaneous
  Country: ES (occurrence: ES)
  Receive Date: 20210112
  Receipt Date: 20210123
  Transmission Date: 20210419
  Serious: Yes (Life-Threatening, Hospitalization, Disabling, Other)
  Sender: FDA-Public Use
  Company Number: ES-ACCORD-214331

PATIENT
  Age: 73 Year
  Sex: Female

DRUGS (14)
  1. ADIRO [Concomitant]
     Active Substance: ASPIRIN
     Indication: ACUTE MYOCARDIAL INFARCTION
     Dosage: STRENGTH: 100 MG, EFG, 1 TABLET WITH MEA
     Route: 048
     Dates: start: 201811
  2. RAMIPRIL. [Concomitant]
     Active Substance: RAMIPRIL
     Indication: ACUTE MYOCARDIAL INFARCTION
     Dosage: STRENGTH: 5 MG, 1 TABLET AT BREAKFAST
     Route: 048
     Dates: start: 201811
  3. BRILIQUE [Interacting]
     Active Substance: TICAGRELOR
     Indication: ACUTE MYOCARDIAL INFARCTION
     Dosage: STRENGTH: 90 MG, 56 TABLETS, 1 TABLET AT BREAKFAST AND ANOTHER AT DINNER
     Route: 048
     Dates: start: 201811, end: 201901
  4. CARDYL [Interacting]
     Active Substance: ATORVASTATIN CALCIUM
     Indication: ACUTE MYOCARDIAL INFARCTION
     Dosage: 80 MG,  28 TABLETS
     Route: 048
     Dates: start: 201811, end: 201901
  5. CODEINE PHOSPHATE/PARACETAMOL [Concomitant]
     Active Substance: ACETAMINOPHEN\CODEINE PHOSPHATE
     Indication: CATARRH
     Dosage: 1 G EFG, 40 TABLETS, IT DOES NOT APPEAR IN THE ELECTRONIC MEDICAL RECORD OF PRIMARY CARE
     Route: 048
     Dates: start: 20181205
  6. TICAGRELOR. [Interacting]
     Active Substance: TICAGRELOR
     Indication: PRODUCT USED FOR UNKNOWN INDICATION
     Route: 048
  7. DEMILOS [Concomitant]
     Active Substance: CALCIUM CARBONATE\CHOLECALCIFEROL
     Indication: OSTEOPOROSIS
     Dosage: 600 MG / 1000 IU, 30 TABLETS, 1 EVERY 24 HOURS
     Route: 048
  8. ACETYLSALICYLIC ACID [Concomitant]
     Active Substance: ASPIRIN
  9. ATORVASTATIN/ATORVASTATIN CALCIUM [Suspect]
     Active Substance: ATORVASTATIN CALCIUM
     Indication: DYSLIPIDAEMIA
  10. BISOPROLOL [Concomitant]
     Active Substance: BISOPROLOL
  11. EMCONCOR COR [Concomitant]
     Active Substance: BISOPROLOL
     Indication: ACUTE MYOCARDIAL INFARCTION
     Dosage: STRENGTH: 2.5 MG, 28 TABLETS, 1 TABLET AT BREAKFAST AND ANOTHER AT DINNER
     Route: 048
     Dates: start: 201811
  12. OMEPRAZOLE. [Concomitant]
     Active Substance: OMEPRAZOLE
     Dosage: STRENGTH: 20 MG, 28 CAPSULES, 1?0?0. 1 EVERY 24 HOURS
     Route: 048
  13. CAFINITRINA [Concomitant]
     Indication: ACUTE MYOCARDIAL INFARCTION
     Dosage: STRENGTH: 1 MG, ONLY IF CHEST PAIN. CAN TAKE UP TO THREE TABLETS 15 MINUTES APART
     Route: 060
     Dates: start: 201811
  14. ORFIDAL [Concomitant]
     Active Substance: LORAZEPAM
     Dosage: STRENGTH: 1 MG, 50 TABLETS, 2 EVERY 24 HOURS
     Route: 048

REACTIONS (5)
  - Myopathy [Recovering/Resolving]
  - Acute kidney injury [Recovering/Resolving]
  - Rhabdomyolysis [Recovering/Resolving]
  - Metabolic acidosis [Recovered/Resolved]
  - Drug interaction [Unknown]

NARRATIVE: CASE EVENT DATE: 201811
